FAERS Safety Report 25661789 (Version 3)
Quarter: 2025Q4

REPORT INFORMATION
  Report Type: Spontaneous
  Country: JP (occurrence: JP)
  Receive Date: 20250809
  Receipt Date: 20251128
  Transmission Date: 20260118
  Serious: Yes (Death)
  Sender: AMGEN
  Company Number: JP-AMGEN-JPNSP2025158082

PATIENT
  Age: 47 Year
  Sex: Male

DRUGS (1)
  1. UPLIZNA [Suspect]
     Active Substance: INEBILIZUMAB-CDON
     Indication: Neuromyelitis optica spectrum disorder
     Dosage: 300 MILLIGRAM, QD
     Route: 040
     Dates: start: 20240518, end: 20250517

REACTIONS (1)
  - Completed suicide [Fatal]
